FAERS Safety Report 16590930 (Version 1)
Quarter: 2019Q3

REPORT INFORMATION
  Report Type: Spontaneous
  Country: DE (occurrence: DE)
  Receive Date: 20190718
  Receipt Date: 20190718
  Transmission Date: 20191004
  Serious: Yes (Hospitalization)
  Sender: FDA-Public Use
  Company Number: DE-PFIZER INC-2019300290

PATIENT
  Age: 61 Year
  Sex: Male
  Weight: 94 kg

DRUGS (2)
  1. DOCETAXEL. [Suspect]
     Active Substance: DOCETAXEL
     Dosage: UNSPECIFIED MG
  2. PREDNISOLONE. [Suspect]
     Active Substance: PREDNISOLONE
     Dosage: 5 MG, UNK (1-0-1-0)

REACTIONS (2)
  - Pulmonary embolism [Unknown]
  - Pneumonia [Unknown]

NARRATIVE: CASE EVENT DATE: 20170706
